FAERS Safety Report 9932099 (Version 1)
Quarter: 2014Q1

REPORT INFORMATION
  Report Type: Spontaneous
  Country: US (occurrence: US)
  Receive Date: 20140228
  Receipt Date: 20140228
  Transmission Date: 20141002
  Serious: No
  Sender: FDA-Public Use
  Company Number: US-ABBVIE-14P-163-1192781-00

PATIENT
  Sex: Male
  Weight: 83.54 kg

DRUGS (11)
  1. ANDROGEL [Suspect]
     Indication: BLOOD TESTOSTERONE DECREASED
     Dates: start: 2010
  2. ASPIRIN [Concomitant]
     Indication: CARDIAC DISORDER
  3. FOLBEE [Concomitant]
     Indication: VITAMIN B COMPLEX DEFICIENCY
  4. CLONAZEPAM [Concomitant]
     Indication: ANXIETY
  5. METOPROLOL [Concomitant]
     Indication: HYPERTENSION
  6. FENOFIBRATE [Concomitant]
     Indication: BLOOD TRIGLYCERIDES INCREASED
  7. METFORMIN [Concomitant]
     Indication: DIABETES MELLITUS
  8. LISINOPRIL [Concomitant]
     Indication: HYPERTENSION
  9. VITAMIN D [Concomitant]
     Indication: VITAMIN SUPPLEMENTATION
  10. ENDUR-ACIN [Concomitant]
     Indication: SUPPLEMENTATION THERAPY
  11. CRESTOR [Concomitant]
     Indication: BLOOD CHOLESTEROL INCREASED

REACTIONS (1)
  - Hirsutism [Not Recovered/Not Resolved]
